FAERS Safety Report 17581137 (Version 1)
Quarter: 2020Q1

REPORT INFORMATION
  Report Type: Spontaneous
  Country: US (occurrence: US)
  Receive Date: 20200323
  Receipt Date: 20200323
  Transmission Date: 20200409
  Serious: Yes (Life-Threatening, Hospitalization)
  Sender: FDA-Public Use
  Company Number: None

PATIENT
  Age: 57 Year
  Sex: Male

DRUGS (1)
  1. WARFARIN (WARFARIN NA (EXELAN) 5MG TAB [Suspect]
     Active Substance: WARFARIN
     Indication: AORTIC VALVE REPLACEMENT
     Dates: start: 20181029, end: 20200221

REACTIONS (2)
  - Haemorrhage intracranial [None]
  - Subdural haematoma [None]

NARRATIVE: CASE EVENT DATE: 20200221
